FAERS Safety Report 8881268 (Version 2)
Quarter: 2014Q3

REPORT INFORMATION
  Report Type: Report from Study
  Country: US (occurrence: US)
  Receive Date: 20121031
  Receipt Date: 20140822
  Transmission Date: 20150326
  Serious: Yes (Hospitalization, Other)
  Sender: FDA-Public Use
  Company Number: US-ROCHE-1131244

PATIENT
  Sex: Female
  Weight: 65.45 kg

DRUGS (4)
  1. VIOXX [Concomitant]
     Active Substance: ROFECOXIB
  2. RITUXIMAB [Suspect]
     Active Substance: RITUXIMAB
     Indication: CONNECTIVE TISSUE DISORDER
     Route: 042
  3. PREDNISOLONE. [Concomitant]
     Active Substance: PREDNISOLONE
  4. RITUXIMAB [Suspect]
     Active Substance: RITUXIMAB
     Indication: SYSTEMIC LUPUS ERYTHEMATOSUS
     Route: 042
     Dates: start: 20040219

REACTIONS (6)
  - No therapeutic response [Unknown]
  - Deep vein thrombosis [Unknown]
  - Vena cava thrombosis [Unknown]
  - Malaise [Unknown]
  - Vomiting [Unknown]
  - Off label use [Unknown]
